FAERS Safety Report 15918143 (Version 1)
Quarter: 2019Q1

REPORT INFORMATION
  Report Type: Spontaneous
  Country: AU (occurrence: AU)
  Receive Date: 20190205
  Receipt Date: 20190205
  Transmission Date: 20190417
  Serious: Yes (Other)
  Sender: FDA-Public Use
  Company Number: AU-SAKK-2019SA022540AA

PATIENT
  Age: 25 Year
  Weight: 50 kg

DRUGS (2)
  1. CYCLOSPORINE. [Concomitant]
     Active Substance: CYCLOSPORINE
     Indication: DERMATITIS ATOPIC
     Dosage: 200 MG
     Route: 048
  2. DUPILUMAB [Suspect]
     Active Substance: DUPILUMAB
     Indication: DERMATITIS ATOPIC
     Dosage: UNK UNK, QOW
     Route: 058
     Dates: start: 20180512, end: 20190123

REACTIONS (5)
  - Lacrimation increased [Unknown]
  - Swelling of eyelid [Unknown]
  - Eye irritation [Unknown]
  - Eye disorder [Unknown]
  - Eye pain [Unknown]

NARRATIVE: CASE EVENT DATE: 20190116
